FAERS Safety Report 18440918 (Version 1)
Quarter: 2020Q4

REPORT INFORMATION
  Report Type: Spontaneous
  Country: US (occurrence: US)
  Receive Date: 20201029
  Receipt Date: 20201029
  Transmission Date: 20210114
  Serious: Yes (Hospitalization)
  Sender: FDA-Public Use
  Company Number: None

PATIENT
  Age: 50 Year
  Sex: Female

DRUGS (11)
  1. TAMSULOSIN [Concomitant]
     Active Substance: TAMSULOSIN
  2. PROGESTERONE. [Concomitant]
     Active Substance: PROGESTERONE
  3. TEMAZEPAM. [Concomitant]
     Active Substance: TEMAZEPAM
  4. NAPROXEN. [Concomitant]
     Active Substance: NAPROXEN
  5. KETOROLAC [Concomitant]
     Active Substance: KETOROLAC TROMETHAMINE
  6. CIPROFLOXACIN. [Concomitant]
     Active Substance: CIPROFLOXACIN
  7. APAP/CODEINE [Concomitant]
     Active Substance: ACETAMINOPHEN\CODEINE PHOSPHATE
  8. METHOTREXATE. [Concomitant]
     Active Substance: METHOTREXATE
  9. ONDANSETRON [Concomitant]
     Active Substance: ONDANSETRON
  10. CIMZIA [Suspect]
     Active Substance: CERTOLIZUMAB PEGOL
     Indication: RHEUMATOID ARTHRITIS
     Route: 058
  11. ESTRADIOL. [Concomitant]
     Active Substance: ESTRADIOL

REACTIONS (2)
  - Nephrolithiasis [None]
  - Pain [None]

NARRATIVE: CASE EVENT DATE: 202010
